FAERS Safety Report 12476593 (Version 1)
Quarter: 2016Q2

REPORT INFORMATION
  Report Type: Report from Study
  Country: DE (occurrence: DE)
  Receive Date: 20160617
  Receipt Date: 20160617
  Transmission Date: 20160815
  Serious: Yes (Death, Hospitalization, Other)
  Sender: FDA-Public Use
  Company Number: PHHO2015DE015512

PATIENT
  Age: 71 Year
  Sex: Male

DRUGS (26)
  1. CIPRALEX [Concomitant]
     Active Substance: ESCITALOPRAM OXALATE
     Indication: DEPRESSION
     Dosage: 10 MG, QD
     Route: 048
  2. ALNA [Concomitant]
     Active Substance: TAMSULOSIN HYDROCHLORIDE
     Indication: BENIGN PROSTATIC HYPERPLASIA
     Dosage: 0.4 MG, QD
     Route: 048
  3. UROSIN [Concomitant]
     Active Substance: ALLOPURINOL
     Indication: HYPERURICAEMIA
     Dosage: 300 MG, QD
     Route: 048
  4. AMELIOR [Concomitant]
     Active Substance: AMLODIPINE BESYLATE\OLMESARTAN MEDOXOMIL
     Indication: HYPERTENSION
     Dosage: 20 MG, QD
     Route: 048
  5. GLUCOPHAGE [Concomitant]
     Active Substance: METFORMIN HYDROCHLORIDE
     Indication: TYPE 2 DIABETES MELLITUS
     Dosage: 1700 MG, QD
     Route: 048
  6. SERTRALIN//SERTRALINE [Concomitant]
     Indication: PRODUCT USED FOR UNKNOWN INDICATION
     Dosage: 75 MG, UNK
     Route: 065
     Dates: start: 20150708
  7. KONAKION [Concomitant]
     Active Substance: PHYTONADIONE
     Indication: COAGULOPATHY
     Dosage: DAILY
     Route: 048
     Dates: start: 20150122, end: 20150209
  8. BIOFLORIN//ENTEROCOCCUS FAECALIS [Concomitant]
     Indication: DIARRHOEA
     Dosage: UNK
     Route: 048
     Dates: start: 20150126
  9. CEFUROXIM//CEFUROXIME SODIUM [Concomitant]
     Indication: ERYSIPELAS
     Dosage: 500 MG, AS PRESCRIBED
     Route: 048
     Dates: start: 20150326, end: 20150409
  10. APREDNISLON [Concomitant]
     Active Substance: PREDNISOLONE
     Indication: ARTHRALGIA
     Dosage: AS PRESCRIBED
     Route: 048
     Dates: start: 20150511, end: 20150526
  11. QUANTALAN [Concomitant]
     Active Substance: CHOLESTYRAMINE
     Indication: PRODUCT USED FOR UNKNOWN INDICATION
     Dosage: UNK, QID
     Route: 065
     Dates: start: 20150708
  12. VOLTAREN [Concomitant]
     Active Substance: DICLOFENAC SODIUM
     Indication: ARTHRALGIA
     Dosage: 100 MG, UNK
     Route: 048
     Dates: start: 20140922, end: 20150408
  13. MEXALEN [Concomitant]
     Active Substance: ACETAMINOPHEN
     Indication: ARTHRALGIA
     Dosage: 500 MG, AS PRESCRIBED
     Route: 048
     Dates: start: 20150526, end: 20150622
  14. MEFENAMIC-ACID [Concomitant]
     Active Substance: MEFENAMIC ACID
     Indication: FLANK PAIN
     Dosage: 500 MG, AS PRESCRIBED
     Route: 048
     Dates: start: 20140707, end: 20140825
  15. MUCOBENE [Concomitant]
     Indication: RESPIRATORY TRACT INFECTION
     Dosage: 600 MG, AS PRESCRIBED
     Route: 048
     Dates: start: 20141007, end: 20141014
  16. RESYL WITH CODEINE [Concomitant]
     Indication: RESPIRATORY TRACT INFECTION
     Dosage: AS PRESCRIBED
     Route: 048
     Dates: start: 20141007, end: 20141014
  17. ARTHROTEC [Concomitant]
     Active Substance: DICLOFENAC SODIUM\MISOPROSTOL
     Indication: ARTHRALGIA
     Dosage: UNK
     Route: 048
     Dates: start: 20150622
  18. PAZOPANIB [Suspect]
     Active Substance: PAZOPANIB
     Indication: RENAL CELL CARCINOMA
     Dosage: 800 MG, UNK
     Route: 065
     Dates: start: 20150427, end: 20150616
  19. GANFORT [Concomitant]
     Active Substance: BIMATOPROST\TIMOLOL
     Indication: PRODUCT USED FOR UNKNOWN INDICATION
     Dosage: 300 UG, QD
     Route: 065
     Dates: start: 20150708
  20. ENTEROBENE [Concomitant]
     Indication: DIARRHOEA
     Dosage: 2 MG, AS PRESCRIBED
     Route: 048
     Dates: start: 20140729, end: 20150407
  21. ENTEROBENE [Concomitant]
     Dosage: 2 MG, UNK
     Route: 048
     Dates: start: 20150508
  22. APREDNISLON [Concomitant]
     Active Substance: PREDNISOLONE
     Indication: GOUT
     Dosage: 25 MG, AS PRESCRIBED
     Route: 048
     Dates: start: 20150408, end: 20150427
  23. SORAFENIB [Suspect]
     Active Substance: SORAFENIB
     Indication: RENAL CELL CARCINOMA
     Dosage: UNK
     Route: 065
     Dates: start: 20140630, end: 20150401
  24. TRITTICO [Concomitant]
     Active Substance: TRAZODONE HYDROCHLORIDE
     Indication: DEPRESSION
     Dosage: 75 MG, QD
     Route: 048
  25. BALDRIAN-DISPERT [Concomitant]
     Indication: SLEEP DISORDER
     Dosage: 30 DRP, UNK
     Route: 048
     Dates: start: 20141215
  26. VOLTAREN [Concomitant]
     Active Substance: DICLOFENAC SODIUM
     Dosage: UNK
     Route: 065
     Dates: start: 20150112

REACTIONS (1)
  - Hepatic failure [Fatal]

NARRATIVE: CASE EVENT DATE: 20150617
